FAERS Safety Report 16049079 (Version 1)
Quarter: 2019Q1

REPORT INFORMATION
  Report Type: Spontaneous
  Country: GB (occurrence: GB)
  Receive Date: 20190307
  Receipt Date: 20190307
  Transmission Date: 20190418
  Serious: Yes (Other)
  Sender: FDA-Public Use
  Company Number: PHHY2019GB051572

PATIENT
  Age: 85 Year
  Sex: Male

DRUGS (1)
  1. AMOXICILLIN. [Suspect]
     Active Substance: AMOXICILLIN
     Indication: COUGH
     Dosage: 3 DF, QD FOR 7 DAYS TOTAL 21 CAPSULES
     Route: 048
     Dates: start: 20190118, end: 20190125

REACTIONS (2)
  - Haemorrhage [Not Recovered/Not Resolved]
  - Pruritus [Recovered/Resolved]
